FAERS Safety Report 9829202 (Version 1)
Quarter: 2014Q1

REPORT INFORMATION
  Report Type: Spontaneous
  Country: FR (occurrence: FR)
  Receive Date: 20140119
  Receipt Date: 20140119
  Transmission Date: 20141002
  Serious: Yes (Death)
  Sender: FDA-Public Use
  Company Number: FR-OTSUKA-US-2014-10077

PATIENT
  Sex: 0

DRUGS (5)
  1. BUSULFEX [Suspect]
     Indication: ACUTE LEUKAEMIA
     Dosage: UNK
  2. CYCLOPHOSPHAMIDE [Suspect]
     Indication: ACUTE LEUKAEMIA
     Dosage: UNK
  3. MELPHALAN [Suspect]
     Indication: ACUTE LEUKAEMIA
     Dosage: UNK
  4. FLUDARABINE [Suspect]
     Indication: ACUTE LEUKAEMIA
     Dosage: UNK
  5. THIOTEPA [Suspect]
     Indication: ACUTE LEUKAEMIA
     Dosage: UNK

REACTIONS (1)
  - Death [Fatal]
